FAERS Safety Report 5288476-1 (Version None)
Quarter: 2007Q2

REPORT INFORMATION
  Report Type: 
  Country: None (occurrence: None)
  Receive Date: 20070405
  Receipt Date: 20070323
  Transmission Date: 20071010
  Serious: Yes (Hospitalization)
  Sender: FDA-Public Use
  Company Number: US-ELI_LILLY_AND_COMPANY-US200703005051

PATIENT
  Age: 70 Year
  Sex: Female

DRUGS (1)
  1. FORTEO [Suspect]
     Dates: start: 20060101

REACTIONS (5)
  - CHRONIC OBSTRUCTIVE PULMONARY DISEASE [None]
  - FRACTURED SACRUM [None]
  - INJECTION SITE ERYTHEMA [None]
  - INJURY [None]
  - SPINAL FRACTURE [None]
